FAERS Safety Report 13792995 (Version 1)
Quarter: 2017Q3

REPORT INFORMATION
  Report Type: Spontaneous
  Country: US (occurrence: US)
  Receive Date: 20170726
  Receipt Date: 20170726
  Transmission Date: 20171127
  Serious: No
  Sender: FDA-Public Use
  Company Number: None

PATIENT
  Sex: Female
  Weight: 52.62 kg

DRUGS (9)
  1. HAWTHORN BERRY EXTRACT [Concomitant]
     Active Substance: CRATAEGUS DOUGLASII FRUIT
  2. VITAMIN C [Concomitant]
     Active Substance: ASCORBIC ACID
  3. ALMA (GOOSEBERRY PLANT) [Concomitant]
  4. ORGANIC MULTI VITAMIN [Concomitant]
  5. VITAMIN D [Concomitant]
     Active Substance: CHOLECALCIFEROL
  6. GRAPE SEED [Concomitant]
     Active Substance: HERBALS\VITIS VINIFERA SEED
  7. COQ10 [Concomitant]
     Active Substance: UBIDECARENONE
  8. VITAMIN E [Concomitant]
     Active Substance: .ALPHA.-TOCOPHEROL
  9. COZAAR [Suspect]
     Active Substance: LOSARTAN POTASSIUM
     Indication: HYPERTENSION
     Route: 048
     Dates: start: 20140201, end: 201407

REACTIONS (3)
  - Upper respiratory tract infection [None]
  - Viral infection [None]
  - Ageusia [None]
